FAERS Safety Report 25189558 (Version 1)
Quarter: 2025Q2

REPORT INFORMATION
  Report Type: Spontaneous
  Country: US (occurrence: US)
  Receive Date: 20250411
  Receipt Date: 20250411
  Transmission Date: 20250716
  Serious: No
  Sender: TORRENT
  Company Number: US-TORRENT-00014292

PATIENT
  Age: 93 Year
  Sex: Male
  Weight: 63 kg

DRUGS (1)
  1. ESCITALOPRAM [Suspect]
     Active Substance: ESCITALOPRAM OXALATE
     Indication: Anxiety
     Route: 065
     Dates: start: 20250301

REACTIONS (6)
  - Feeling abnormal [Unknown]
  - Insomnia [Unknown]
  - Fatigue [Unknown]
  - Hyperhidrosis [Unknown]
  - Therapy interrupted [Unknown]
  - Intentional product use issue [Unknown]
